FAERS Safety Report 15061142 (Version 1)
Quarter: 2018Q2

REPORT INFORMATION
  Report Type: Spontaneous
  Country: US (occurrence: US)
  Receive Date: 20180625
  Receipt Date: 20180625
  Transmission Date: 20180711
  Serious: No
  Sender: FDA-Public Use
  Company Number: US-ROCHE-1991503

PATIENT
  Age: 74 Year
  Sex: Female

DRUGS (4)
  1. FEMARA [Suspect]
     Active Substance: LETROZOLE
     Indication: BREAST CANCER STAGE IV
     Route: 048
     Dates: start: 201202, end: 201212
  2. FEMARA [Suspect]
     Active Substance: LETROZOLE
     Route: 048
     Dates: start: 201704, end: 201706
  3. PALBOCICLIB [Suspect]
     Active Substance: PALBOCICLIB
     Indication: BREAST CANCER STAGE IV
     Dosage: DAILY X 21 DAYS
     Route: 048
     Dates: start: 201704, end: 201706
  4. XELODA [Suspect]
     Active Substance: CAPECITABINE
     Indication: DISEASE PROGRESSION
     Route: 065
     Dates: start: 201401, end: 201502

REACTIONS (8)
  - Ear pain [Recovered/Resolved]
  - Paraesthesia [Recovered/Resolved]
  - Cough [Recovered/Resolved]
  - White blood cell count decreased [Recovered/Resolved]
  - Pyrexia [Recovered/Resolved]
  - Oropharyngeal pain [Recovered/Resolved]
  - Night sweats [Recovered/Resolved]
  - Pneumonia [Recovered/Resolved]

NARRATIVE: CASE EVENT DATE: 20170906
